FAERS Safety Report 11111814 (Version 1)
Quarter: 2015Q2

REPORT INFORMATION
  Report Type: Spontaneous
  Country: US (occurrence: None)
  Receive Date: 20150512
  Receipt Date: 20150512
  Transmission Date: 20150821
  Serious: No
  Sender: FDA-Public Use
  Company Number: None

PATIENT
  Age: 82 Year
  Sex: Female
  Weight: 67.13 kg

DRUGS (11)
  1. RESTASIS [Concomitant]
     Active Substance: CYCLOSPORINE
  2. BABY ASPIRIN [Concomitant]
     Active Substance: ASPIRIN
  3. LABETALOL [Concomitant]
     Active Substance: LABETALOL\LABETALOL HYDROCHLORIDE
  4. LUTEIN [Concomitant]
     Active Substance: LUTEIN
  5. COQ10 [Concomitant]
     Active Substance: UBIDECARENONE
  6. ATOVASTATIN [Concomitant]
     Active Substance: ATORVASTATIN
  7. BELSOMRA [Concomitant]
     Active Substance: SUVOREXANT
  8. CITRACAL [Concomitant]
     Active Substance: CALCIUM CITRATE
  9. TRAZODONE [Suspect]
     Active Substance: TRAZODONE HYDROCHLORIDE
     Indication: INSOMNIA
     Route: 048
     Dates: start: 20150402, end: 20150408
  10. LASINOPRIL [Concomitant]
  11. CENTRUM SILVER [Concomitant]
     Active Substance: VITAMINS

REACTIONS (9)
  - Balance disorder [None]
  - Feeling abnormal [None]
  - Unevaluable event [None]
  - Dysgeusia [None]
  - Dry mouth [None]
  - Decreased appetite [None]
  - Dry eye [None]
  - Laryngitis [None]
  - Gait disturbance [None]

NARRATIVE: CASE EVENT DATE: 20150402
